FAERS Safety Report 22589795 (Version 1)
Quarter: 2023Q2

REPORT INFORMATION
  Report Type: Spontaneous
  Country: US (occurrence: US)
  Receive Date: 20230612
  Receipt Date: 20230612
  Transmission Date: 20230722
  Serious: No
  Sender: FDA-Public Use
  Company Number: US-ABBVIE-5281739

PATIENT

DRUGS (4)
  1. LUPRON [Suspect]
     Active Substance: LEUPROLIDE ACETATE
     Indication: Product used for unknown indication
     Dosage: LUPRON 1-MONTH 15MG( 2 INJECTIONS OF 7.5MG)
     Route: 065
  2. LUPRON [Suspect]
     Active Substance: LEUPROLIDE ACETATE
     Dosage: LUPRON 1-MONTH 7.5MG
  3. LUPRON [Suspect]
     Active Substance: LEUPROLIDE ACETATE
  4. LUPRON [Suspect]
     Active Substance: LEUPROLIDE ACETATE

REACTIONS (2)
  - Adverse drug reaction [Unknown]
  - Drug ineffective [Unknown]
